FAERS Safety Report 4596032-3 (Version None)
Quarter: 2005Q1

REPORT INFORMATION
  Report Type: 
  Country: None (occurrence: None)
  Receive Date: 20050224
  Receipt Date: 20050215
  Transmission Date: 20050727
  Serious: Yes (Other)
  Sender: FDA-Public Use
  Company Number: 2005US000213

PATIENT
  Age: 43 Year
  Sex: Male

DRUGS (5)
  1. AMBISOME [Suspect]
     Indication: LEISHMANIASIS
     Dosage: 3.00 MG/KG, UID/QD
  2. LOPINAVIR [Concomitant]
  3. RITONAVIR [Concomitant]
  4. LAMIVUDINE [Concomitant]
  5. STAVUDINE [Concomitant]

REACTIONS (7)
  - ANAEMIA [None]
  - BONE MARROW TOXICITY [None]
  - CONDITION AGGRAVATED [None]
  - HAEMATOTOXICITY [None]
  - LEUKOPENIA [None]
  - NEPHROPATHY TOXIC [None]
  - RENAL FAILURE [None]
